FAERS Safety Report 17226946 (Version 1)
Quarter: 2020Q1

REPORT INFORMATION
  Report Type: Spontaneous
  Country: SE (occurrence: SE)
  Receive Date: 20200103
  Receipt Date: 20200103
  Transmission Date: 20200409
  Serious: Yes (Hospitalization)
  Sender: FDA-Public Use
  Company Number: SE-TEVA-2019-SE-1160392

PATIENT
  Age: 67 Year
  Sex: Female

DRUGS (4)
  1. HEMINEVRIN [Concomitant]
     Active Substance: CLOMETHIAZOLE
  2. OLANZAPINE. [Suspect]
     Active Substance: OLANZAPINE
     Route: 048
     Dates: start: 201910, end: 201911
  3. BUCCOLAM [Concomitant]
     Active Substance: MIDAZOLAM HYDROCHLORIDE
  4. STESOLID 5 MG TABLETT [Suspect]
     Active Substance: DIAZEPAM
     Route: 048
     Dates: end: 201911

REACTIONS (1)
  - Parkinsonism [Recovered/Resolved]

NARRATIVE: CASE EVENT DATE: 20191103
